FAERS Safety Report 5051639-4 (Version None)
Quarter: 2006Q3

REPORT INFORMATION
  Report Type: 
  Country: None (occurrence: None)
  Receive Date: 20060711
  Receipt Date: 20060630
  Transmission Date: 20061208
  Serious: Yes (Hospitalization)
  Sender: FDA-Public Use
  Company Number: 226937

PATIENT
  Age: 45 Year
  Sex: Male

DRUGS (2)
  1. XOLAIR [Suspect]
     Indication: ASTHMA
     Dosage: Q2W,
     Dates: start: 20060501
  2. STEROID (STEROID NOS) [Concomitant]

REACTIONS (1)
  - INTERSTITIAL LUNG DISEASE [None]
